FAERS Safety Report 6249149-1 (Version None)
Quarter: 2009Q2

REPORT INFORMATION
  Report Type: 
  Country: None (occurrence: None)
  Receive Date: 20090624
  Receipt Date: 20090624
  Transmission Date: 20091009
  Serious: Yes (Other)
  Sender: FDA-Public Use
  Company Number: None

PATIENT
  Age: 78 Year
  Sex: Male
  Weight: 79.3795 kg

DRUGS (1)
  1. ADVAIR DISKUS 250/50 [Suspect]
     Indication: MYALGIA
     Dosage: 1 INHALING OF THE POWDER TWICE PER DAY PO
     Route: 048
     Dates: start: 20090602, end: 20090619

REACTIONS (1)
  - MYALGIA [None]
